FAERS Safety Report 10047635 (Version 1)
Quarter: 2014Q1

REPORT INFORMATION
  Report Type: Spontaneous
  Country: US (occurrence: None)
  Receive Date: 20140328
  Receipt Date: 20140328
  Transmission Date: 20141002
  Serious: Yes (Other)
  Sender: FDA-Public Use
  Company Number: None

PATIENT
  Age: 62 Year
  Sex: Male
  Weight: 49.9 kg

DRUGS (1)
  1. VENLAFAXINE (EXTENDED RELEASE) [Suspect]
     Indication: DEPRESSION
     Route: 048
     Dates: start: 20120919, end: 20121031

REACTIONS (5)
  - Depression [None]
  - Agitation [None]
  - Confusional state [None]
  - Somnolence [None]
  - Memory impairment [None]
